FAERS Safety Report 9468387 (Version 1)
Quarter: 2013Q3

REPORT INFORMATION
  Report Type: Spontaneous
  Country: GB (occurrence: GB)
  Receive Date: 20130821
  Receipt Date: 20130821
  Transmission Date: 20140515
  Serious: Yes (Other)
  Sender: FDA-Public Use
  Company Number: GB-TEVA-425774ISR

PATIENT
  Age: 65 Year
  Sex: Male
  Weight: 84.9 kg

DRUGS (12)
  1. NITROFURANTOIN [Suspect]
     Indication: URINARY TRACT INFECTION
     Dosage: SECOND COURSE
     Dates: start: 20130715
  2. SIMVASTATIN [Concomitant]
     Dates: start: 20130423
  3. SPIRONOLACTONE [Concomitant]
     Dates: start: 20130423
  4. WARFARIN SODIUM [Concomitant]
     Dates: start: 20130423
  5. NEBIVOLOL [Concomitant]
     Dates: start: 20130423
  6. DIGOXIN [Concomitant]
     Dates: start: 20130423
  7. LOSARTAN [Concomitant]
     Dates: start: 20130423
  8. DOXYCYCLINE [Concomitant]
     Dates: start: 20130605, end: 20130612
  9. DOXYCYCLINE [Concomitant]
     Dates: start: 20130627, end: 20130704
  10. FUROSEMIDE [Concomitant]
     Dates: start: 20130627, end: 20130725
  11. TRIMETHOPRIM [Concomitant]
     Dates: start: 20130710, end: 20130715
  12. DOXAZOSIN [Concomitant]
     Dates: start: 20130723

REACTIONS (2)
  - Rash papular [Not Recovered/Not Resolved]
  - Rash generalised [Not Recovered/Not Resolved]
